FAERS Safety Report 15979926 (Version 1)
Quarter: 2019Q1

REPORT INFORMATION
  Report Type: Spontaneous
  Country: GB (occurrence: GB)
  Receive Date: 20190219
  Receipt Date: 20190219
  Transmission Date: 20190418
  Serious: Yes (Life-Threatening, Hospitalization)
  Sender: FDA-Public Use
  Company Number: GB-ACCORD-107658

PATIENT
  Age: 9 Year
  Sex: Female
  Weight: 29 kg

DRUGS (4)
  1. DEXAMETHASONE. [Concomitant]
     Active Substance: DEXAMETHASONE
     Indication: PROPHYLAXIS OF NAUSEA AND VOMITING
     Route: 042
     Dates: start: 20180615, end: 20180615
  2. PROPOFOL. [Concomitant]
     Active Substance: PROPOFOL
     Indication: ANAESTHESIA
     Dates: start: 20180615
  3. ONDANSETRON [Suspect]
     Active Substance: ONDANSETRON
     Indication: PROPHYLAXIS OF NAUSEA AND VOMITING
     Route: 042
     Dates: start: 20180615, end: 20180615
  4. FENTANYL. [Concomitant]
     Active Substance: FENTANYL
     Indication: ANAESTHESIA
     Dates: start: 20180615

REACTIONS (4)
  - Opisthotonus [Recovered/Resolved]
  - Oculogyric crisis [Recovered/Resolved]
  - Laryngospasm [Recovered/Resolved]
  - Stridor [Recovered/Resolved]

NARRATIVE: CASE EVENT DATE: 20180615
